FAERS Safety Report 25752072 (Version 2)
Quarter: 2025Q4

REPORT INFORMATION
  Report Type: Report from Study
  Country: IN (occurrence: IN)
  Receive Date: 20250902
  Receipt Date: 20251218
  Transmission Date: 20260117
  Serious: Yes (Other)
  Sender: PFIZER
  Company Number: IN-PFIZER INC-2012068019

PATIENT
  Age: 37 Year
  Sex: Male
  Weight: 71 kg

DRUGS (10)
  1. SUTENT [Suspect]
     Active Substance: SUNITINIB MALATE
     Indication: Metastatic renal cell carcinoma
     Dosage: 50 MG, 1X/DAY
     Route: 048
     Dates: start: 20120301, end: 201203
  2. SUTENT [Suspect]
     Active Substance: SUNITINIB MALATE
     Dosage: 37.5 MG, CYCLIC (4WEEKS ON AND 2 WEEK OFF)
     Route: 048
     Dates: start: 201203, end: 20120404
  3. SUTENT [Suspect]
     Active Substance: SUNITINIB MALATE
     Dosage: 50 MG, CYCLIC (14 DAYS ON AND 14 DAYS OFF)
     Route: 048
  4. SUTENT [Suspect]
     Active Substance: SUNITINIB MALATE
     Dosage: 37.5 MG, CYCLIC (12.5MG (3-0-0) 3MONTHS)
     Route: 048
  5. SUTENT [Suspect]
     Active Substance: SUNITINIB MALATE
     Dosage: 50 MG, CYCLIC (1X/DAY, 28 DAYS ON AND 14 DAYS OFF)
     Route: 048
  6. SUTENT [Suspect]
     Active Substance: SUNITINIB MALATE
     Dosage: 50 MG, CYCLIC (2 WEEKS ON, 1 WEEK OFF)
     Route: 048
  7. SUTENT [Suspect]
     Active Substance: SUNITINIB MALATE
     Dosage: 50 MG, CYCLIC (FOR 14 DAYS ON AND 14 DAYS OFF FOR 3 YEARS)
     Route: 048
  8. SUTENT [Suspect]
     Active Substance: SUNITINIB MALATE
     Dosage: 50 MG, CYCLIC(2 WEEKS ON 2 WEEKS OFF)
     Route: 048
  9. SUCRAFIL-O GEL [Concomitant]
     Dosage: 10 ML, 4X/DAY
  10. DOMPERIDONE [Concomitant]
     Active Substance: DOMPERIDONE
     Dosage: 10 MG, 3X/DAY

REACTIONS (13)
  - Haemoglobin decreased [Unknown]
  - Pulmonary fibrosis [Unknown]
  - Metastases to lung [Unknown]
  - Hepatic steatosis [Unknown]
  - Glucose urine present [Unknown]
  - Albumin urine present [Unknown]
  - Mouth ulceration [Not Recovered/Not Resolved]
  - Dry skin [Not Recovered/Not Resolved]
  - Yellow skin [Not Recovered/Not Resolved]
  - Chromaturia [Not Recovered/Not Resolved]
  - White blood cell count decreased [Recovered/Resolved]
  - Infection [Unknown]
  - Renal hypertrophy [Unknown]

NARRATIVE: CASE EVENT DATE: 20120301
